FAERS Safety Report 6441807-9 (Version None)
Quarter: 2009Q4

REPORT INFORMATION
  Report Type: 
  Country: None (occurrence: None)
  Receive Date: 20091112
  Receipt Date: 20091104
  Transmission Date: 20100525
  Serious: Yes (Hospitalization, Disabling)
  Sender: FDA-Public Use
  Company Number: 2009011245

PATIENT
  Age: 19 Year
  Sex: Male

DRUGS (1)
  1. ACTIQ [Suspect]
     Indication: FACIAL PAIN
     Dosage: (400 MCG, 6 TO 10 TIMES PER DAY), BU
     Route: 002
     Dates: start: 20060101

REACTIONS (5)
  - APTYALISM [None]
  - DENTAL CARIES [None]
  - INAPPROPRIATE SCHEDULE OF DRUG ADMINISTRATION [None]
  - POOR PERSONAL HYGIENE [None]
  - TOOTH LOSS [None]
